FAERS Safety Report 10143477 (Version 1)
Quarter: 2014Q2

REPORT INFORMATION
  Report Type: Spontaneous
  Country: US (occurrence: None)
  Receive Date: 20140429
  Receipt Date: 20140429
  Transmission Date: 20141212
  Serious: Yes (Other)
  Sender: FDA-Public Use
  Company Number: None

PATIENT
  Age: 70 Year
  Sex: Male
  Weight: 96.4 kg

DRUGS (1)
  1. HEPARIN [Suspect]
     Indication: VASCULAR OPERATION
     Dates: start: 20140331, end: 20140422

REACTIONS (4)
  - Heparin-induced thrombocytopenia [None]
  - Cellulitis [None]
  - Osteomyelitis [None]
  - Peripheral arterial occlusive disease [None]
